FAERS Safety Report 11840026 (Version 1)
Quarter: 2015Q4

REPORT INFORMATION
  Report Type: Spontaneous
  Country: JP (occurrence: JP)
  Receive Date: 20151216
  Receipt Date: 20151216
  Transmission Date: 20160305
  Serious: Yes (Other)
  Sender: FDA-Public Use
  Company Number: JP-ABBVIE-15P-087-1521038-00

PATIENT

DRUGS (1)
  1. LIPACREON [Suspect]
     Active Substance: PANCRELIPASE
     Indication: PRODUCT USED FOR UNKNOWN INDICATION
     Route: 048

REACTIONS (1)
  - Anaphylactic shock [Unknown]
